FAERS Safety Report 7340847-5 (Version None)
Quarter: 2011Q1

REPORT INFORMATION
  Report Type: 
  Country: None (occurrence: None)
  Receive Date: 20110309
  Receipt Date: 20110303
  Transmission Date: 20110831
  Serious: Yes (Other)
  Sender: FDA-Public Use
  Company Number: US-ALEXION-A201000048

PATIENT
  Sex: Male
  Weight: 73.923 kg

DRUGS (12)
  1. ZOLPIDEM [Concomitant]
     Dosage: UNK
     Route: 048
  2. OMEPRAZOLE [Concomitant]
     Dosage: UNK
     Route: 048
  3. ASPIRIN [Concomitant]
     Dosage: UNK
     Route: 048
  4. SOLIRIS [Suspect]
     Indication: PAROXYSMAL NOCTURNAL HAEMOGLOBINURIA
     Dosage: 600 MG, QW X4
     Route: 042
     Dates: start: 20090625
  5. DILTIAZEM HCL [Concomitant]
     Dosage: UNK
     Route: 048
  6. VITAMIN C                          /00008001/ [Concomitant]
     Dosage: UNK
     Route: 048
  7. SOLIRIS [Suspect]
     Dosage: 900 MG, UNK
     Route: 042
     Dates: start: 20090724, end: 20100115
  8. POTASSIUM CHLORIDE [Concomitant]
     Dosage: UNK
     Route: 048
  9. PREDNISONE [Concomitant]
     Dosage: TAPERED DOSE
     Route: 048
  10. CENTRUM                            /00554501/ [Concomitant]
     Dosage: UNK
     Route: 048
  11. FOLIC ACID [Concomitant]
     Dosage: UNK
     Route: 048
  12. SIMVASTATIN [Concomitant]
     Dosage: UNK
     Route: 048

REACTIONS (6)
  - CHILLS [None]
  - IRON OVERLOAD [None]
  - INFECTION [None]
  - PLEURAL EFFUSION [None]
  - ATELECTASIS [None]
  - PULMONARY MASS [None]
